FAERS Safety Report 13437769 (Version 1)
Quarter: 2017Q2

REPORT INFORMATION
  Report Type: Spontaneous
  Country: US (occurrence: US)
  Receive Date: 20170413
  Receipt Date: 20170413
  Transmission Date: 20170830
  Serious: No
  Sender: FDA-Public Use
  Company Number: US-SA-2016SA112837

PATIENT
  Age: 43 Year
  Sex: Male

DRUGS (1)
  1. ALLEGRA-D 24 HOUR [Suspect]
     Active Substance: FEXOFENADINE HYDROCHLORIDE\PSEUDOEPHEDRINE HYDROCHLORIDE
     Indication: HYPERSENSITIVITY
     Dosage: START DATE: 5-6 WEEKS AGO?STOP DATE: 2-3 WEEKS AGO
     Route: 048

REACTIONS (4)
  - Choking sensation [Recovered/Resolved]
  - Insomnia [Recovered/Resolved]
  - Drug ineffective [Unknown]
  - Dry mouth [Recovered/Resolved]
